FAERS Safety Report 7898628-X (Version None)
Quarter: 2011Q4

REPORT INFORMATION
  Report Type: 
  Country: None (occurrence: None)
  Receive Date: 20111107
  Receipt Date: 20110805
  Transmission Date: 20120403
  Serious: Yes (Hospitalization)
  Sender: FDA-Public Use
  Company Number: US-ELI_LILLY_AND_COMPANY-US201106003887

PATIENT
  Sex: Female

DRUGS (2)
  1. CYMBALTA [Suspect]
     Indication: LUNG DISORDER
     Dosage: 20 MG, QD
     Dates: start: 20080101, end: 20100101
  2. ASPIRIN [Concomitant]

REACTIONS (11)
  - ASTHENIA [None]
  - CONTUSION [None]
  - TRANSIENT ISCHAEMIC ATTACK [None]
  - ECCHYMOSIS [None]
  - ANAEMIA [None]
  - ABDOMINAL NEOPLASM [None]
  - OFF LABEL USE [None]
  - CATARACT [None]
  - GOUTY ARTHRITIS [None]
  - FALL [None]
  - SKIN FRAGILITY [None]
